FAERS Safety Report 12333965 (Version 1)
Quarter: 2016Q2

REPORT INFORMATION
  Report Type: Spontaneous
  Country: US (occurrence: US)
  Receive Date: 20160504
  Receipt Date: 20160504
  Transmission Date: 20160815
  Serious: No
  Sender: FDA-Public Use
  Company Number: US-ROCHE-1697858

PATIENT
  Age: 79 Year
  Sex: Female

DRUGS (6)
  1. LEVOTHYROXIN [Concomitant]
     Active Substance: LEVOTHYROXINE
  2. METFORMIN [Concomitant]
     Active Substance: METFORMIN HYDROCHLORIDE
  3. ESBRIET [Suspect]
     Active Substance: PIRFENIDONE
     Indication: IDIOPATHIC PULMONARY FIBROSIS
     Dosage: 3 CAPSULES THRICE A DAY
     Route: 048
     Dates: start: 20151119
  4. GLIPIZIDE. [Concomitant]
     Active Substance: GLIPIZIDE
  5. LISINOPRIL. [Concomitant]
     Active Substance: LISINOPRIL
  6. TOPROL XL [Concomitant]
     Active Substance: METOPROLOL SUCCINATE

REACTIONS (3)
  - Decreased appetite [Not Recovered/Not Resolved]
  - Drug dose omission [Unknown]
  - Abdominal discomfort [Not Recovered/Not Resolved]

NARRATIVE: CASE EVENT DATE: 20151219
